FAERS Safety Report 5701644-7 (Version None)
Quarter: 2008Q2

REPORT INFORMATION
  Report Type: 
  Country: None (occurrence: None)
  Receive Date: 20080408
  Receipt Date: 20080325
  Transmission Date: 20081010
  Serious: Yes (Other)
  Sender: FDA-Public Use
  Company Number: 2008S1004890

PATIENT
  Age: 16 Year
  Sex: Male
  Weight: 49 kg

DRUGS (12)
  1. CIPROFLOXACIN [Suspect]
     Indication: PERIANAL ABSCESS
     Dosage: 400 MG;TWICE A DAY; INTRAVENOUS
     Route: 042
  2. PENICILLIN /00000903/ [Concomitant]
  3. IBUPROFEN [Concomitant]
  4. RANITIDINE [Concomitant]
  5. AZATHIOPRINE [Concomitant]
  6. MESALAMINE [Concomitant]
  7. LANSOPRAZOLE [Concomitant]
  8. FERROUS SULFATE [Concomitant]
  9. METRONIDAZOLE HCL [Concomitant]
  10. INFLIXIMAB [Concomitant]
  11. METRONIDAZOLE HCL [Concomitant]
  12. METHYLPREDNISOLONE [Concomitant]

REACTIONS (3)
  - BRADYCARDIA [None]
  - DISCOMFORT [None]
  - ELECTROCARDIOGRAM QT PROLONGED [None]
